FAERS Safety Report 9420886 (Version 1)
Quarter: 2013Q3

REPORT INFORMATION
  Report Type: Spontaneous
  Country: US (occurrence: US)
  Receive Date: 20130725
  Receipt Date: 20130725
  Transmission Date: 20140515
  Serious: No
  Sender: FDA-Public Use
  Company Number: US-ABBOTT-13P-163-1079137-00

PATIENT
  Age: 72 Year
  Sex: Male
  Weight: 108.96 kg

DRUGS (2)
  1. SYNTHROID [Suspect]
     Indication: HYPOTHYROIDISM
     Dates: start: 201210
  2. SYNTHROID [Suspect]
     Dates: start: 1978, end: 201210

REACTIONS (1)
  - Blood thyroid stimulating hormone decreased [Not Recovered/Not Resolved]
